FAERS Safety Report 5471317-7 (Version None)
Quarter: 2007Q3

REPORT INFORMATION
  Report Type: 
  Country: None (occurrence: None)
  Receive Date: 20070928
  Receipt Date: 20070920
  Transmission Date: 20080115
  Serious: Yes (Death)
  Sender: FDA-Public Use
  Company Number: CH-SANOFI-SYNTHELABO-A01200710635

PATIENT
  Age: 33 Year
  Sex: Female

DRUGS (8)
  1. EFFEXOR [Concomitant]
     Dosage: 37.5 MG
     Route: 048
     Dates: start: 20060927, end: 20060927
  2. EFFEXOR [Concomitant]
     Dosage: 75 MG
     Route: 048
     Dates: start: 20060928, end: 20061001
  3. TEMESTA [Concomitant]
     Dosage: 2 MG
     Route: 048
     Dates: start: 20060810, end: 20060925
  4. TEMESTA [Concomitant]
     Dosage: 5 MG
     Route: 048
     Dates: start: 20060926, end: 20060926
  5. TEMESTA [Concomitant]
     Dosage: 6 MG
     Route: 048
     Dates: start: 20060927, end: 20060927
  6. TEMESTA [Concomitant]
     Dosage: 4 MG
     Route: 048
     Dates: start: 20060928, end: 20061001
  7. ZOLPIDEM TARTRATE [Suspect]
     Dosage: 10 MG
     Route: 048
     Dates: start: 20060922, end: 20061001
  8. REMERON [Concomitant]
     Dosage: 30 MG
     Route: 048
     Dates: start: 20060810, end: 20061001

REACTIONS (1)
  - COMPLETED SUICIDE [None]
